FAERS Safety Report 9527680 (Version 1)
Quarter: 2013Q1

REPORT INFORMATION
  Report Type: Spontaneous
  Country: US (occurrence: None)
  Receive Date: 20130314
  Receipt Date: 20130314
  Transmission Date: 20140127
  Serious: No
  Sender: FDA-Public Use
  Company Number: 1212USA002982

PATIENT
  Sex: Male

DRUGS (3)
  1. VICTRELIS [Suspect]
     Dosage: 200 MG, UNK
  2. METFORMIN (METFORMIN) TABLET [Concomitant]
  3. VITAMINS (UNSPECIFIED) (VITAMINS (UNSPECIFIED)) [Concomitant]

REACTIONS (4)
  - Hair texture abnormal [None]
  - Diarrhoea [None]
  - Dry skin [None]
  - Alopecia [None]
